FAERS Safety Report 5222935-2 (Version None)
Quarter: 2007Q1

REPORT INFORMATION
  Report Type: 
  Country: None (occurrence: None)
  Receive Date: 20070129
  Receipt Date: 20070123
  Transmission Date: 20070707
  Serious: Yes (Other)
  Sender: FDA-Public Use
  Company Number: US-PFIZER INC-2007006457

PATIENT
  Sex: Female
  Weight: 77.1 kg

DRUGS (4)
  1. LIPITOR [Suspect]
     Indication: BLOOD CHOLESTEROL INCREASED
     Dates: start: 20061215, end: 20061223
  2. ZYRTEC [Concomitant]
  3. SINGULAIR [Concomitant]
  4. ASPIRIN [Concomitant]

REACTIONS (3)
  - HEART RATE INCREASED [None]
  - MUSCULAR WEAKNESS [None]
  - NERVOUS SYSTEM DISORDER [None]
